FAERS Safety Report 8986990 (Version 1)
Quarter: 2012Q4

REPORT INFORMATION
  Report Type: Spontaneous
  Country: US (occurrence: None)
  Receive Date: 20121217
  Receipt Date: 20121217
  Transmission Date: 20130627
  Serious: Yes (Hospitalization)
  Sender: FDA-Public Use
  Company Number: AUR-APL-2012-05362

PATIENT
  Age: 49 Year
  Sex: Female

DRUGS (6)
  1. FLUCONAZOLE [Suspect]
     Indication: ORAL THRUSH
  2. CEFAZOLIN [Suspect]
     Indication: WOUND INFECTION
  3. FLUOXETINE [Suspect]
     Indication: DEPRESSION
  4. VANCOMYCIN [Suspect]
     Indication: WOUND INFECTION
  5. CLAVENTIN [Suspect]
     Indication: WOUND INFECTION
  6. HYDROCODONE [Suspect]
     Indication: PAIN

REACTIONS (1)
  - Linear IgA disease [None]
